FAERS Safety Report 6026632-5 (Version None)
Quarter: 2008Q4

REPORT INFORMATION
  Report Type: 
  Country: None (occurrence: None)
  Receive Date: 20081231
  Receipt Date: 20081216
  Transmission Date: 20090506
  Serious: Yes (Hospitalization)
  Sender: FDA-Public Use
  Company Number: TRP_06014_2008

PATIENT
  Sex: Female

DRUGS (3)
  1. RIBASPHERE [Suspect]
     Indication: DRUG USE FOR UNKNOWN INDICATION
     Dosage: (1200 MG/DAY INTRA-UTERINE)
     Route: 015
     Dates: start: 20080501, end: 20080620
  2. PEGASYS [Suspect]
     Indication: DRUG USE FOR UNKNOWN INDICATION
     Dosage: (180 ?G 1X/WEEK INTRA-UTERINE)
     Route: 015
     Dates: start: 20080501
  3. METHADONE HCL [Suspect]
     Indication: DRUG DEPENDENCE
     Dosage: (80 MG/DAY INTRA-UTERINE)
     Route: 015

REACTIONS (5)
  - HYPERBILIRUBINAEMIA NEONATAL [None]
  - MATERNAL DRUGS AFFECTING FOETUS [None]
  - NEONATAL RESPIRATORY DISTRESS SYNDROME [None]
  - PATERNAL DRUGS AFFECTING FOETUS [None]
  - PREMATURE BABY [None]
